FAERS Safety Report 9555619 (Version 2)
Quarter: 2013Q4

REPORT INFORMATION
  Report Type: Spontaneous
  Country: JP (occurrence: JP)
  Receive Date: 20130926
  Receipt Date: 20131112
  Transmission Date: 20140711
  Serious: Yes (Other)
  Sender: FDA-Public Use
  Company Number: PHHY2013JP106080

PATIENT
  Age: 16 Year
  Sex: Female

DRUGS (2)
  1. GILENYA [Suspect]
     Indication: SECONDARY PROGRESSIVE MULTIPLE SCLEROSIS
     Route: 048
  2. GILENYA [Suspect]
     Indication: OFF LABEL USE

REACTIONS (2)
  - Central nervous system lesion [Unknown]
  - Drug ineffective [Unknown]
